FAERS Safety Report 11697319 (Version 1)
Quarter: 2015Q4

REPORT INFORMATION
  Report Type: Spontaneous
  Country: CA (occurrence: CA)
  Receive Date: 20151104
  Receipt Date: 20151104
  Transmission Date: 20160304
  Serious: Yes (Other)
  Sender: FDA-Public Use
  Company Number: PHHY2015CA141066

PATIENT
  Age: 8 Month
  Sex: Female

DRUGS (1)
  1. TACROLIMUS. [Suspect]
     Active Substance: TACROLIMUS
     Indication: CONGENITAL ABSENCE OF BILE DUCTS
     Route: 065

REACTIONS (2)
  - Transplantation associated food allergy [Unknown]
  - Angioedema [Unknown]
